FAERS Safety Report 9994976 (Version 1)
Quarter: 2014Q1

REPORT INFORMATION
  Report Type: Report from Study
  Country: US (occurrence: US)
  Receive Date: 20140311
  Receipt Date: 20140311
  Transmission Date: 20141002
  Serious: Yes (Other)
  Sender: FDA-Public Use
  Company Number: PHEH2014US004535

PATIENT
  Sex: Female

DRUGS (5)
  1. CICLOSPORIN [Suspect]
     Indication: LIVER TRANSPLANT
     Dosage: UNK UKN, UNK
  2. PROGRAF [Suspect]
     Indication: LIVER TRANSPLANT
     Dosage: UNK UKN, UNK
  3. CELLCEPT [Suspect]
     Indication: LIVER TRANSPLANT
     Dosage: UNK UKN, UNK
  4. RAPAMUNE [Suspect]
     Indication: LIVER TRANSPLANT
     Dosage: UNK UKN, UNK
  5. IMURAN [Suspect]
     Indication: LIVER TRANSPLANT
     Dosage: UNK UKN, UNK

REACTIONS (4)
  - Drug hypersensitivity [Unknown]
  - Erythema [Unknown]
  - Oedema peripheral [Unknown]
  - Toxicity to various agents [Unknown]
